FAERS Safety Report 7651752-9 (Version None)
Quarter: 2011Q3

REPORT INFORMATION
  Report Type: 
  Country: None (occurrence: None)
  Receive Date: 20110802
  Receipt Date: 20110729
  Transmission Date: 20111222
  Serious: Yes (Life-Threatening, Hospitalization, Other)
  Sender: FDA-Public Use
  Company Number: US-MERCK-1107USA02964

PATIENT
  Age: 51 Year
  Sex: Male
  Weight: 99 kg

DRUGS (7)
  1. ALLOPURINOL [Concomitant]
     Route: 065
  2. ANDROGEL [Concomitant]
     Indication: BLOOD TESTOSTERONE DECREASED
     Route: 065
  3. INDOCIN [Concomitant]
     Indication: GOUT
     Route: 065
  4. JANUMET [Suspect]
     Indication: TYPE 2 DIABETES MELLITUS
     Route: 048
  5. ALTACE [Concomitant]
     Route: 065
  6. GLYBURIDE [Concomitant]
     Indication: TYPE 2 DIABETES MELLITUS
     Route: 065
  7. SYNTHROID [Concomitant]
     Route: 065

REACTIONS (5)
  - PANCREATITIS ACUTE [None]
  - DEHYDRATION [None]
  - RHABDOMYOLYSIS [None]
  - HYPERKALAEMIA [None]
  - RENAL FAILURE ACUTE [None]
